FAERS Safety Report 7782674-0 (Version None)
Quarter: 2011Q3

REPORT INFORMATION
  Report Type: 
  Country: None (occurrence: None)
  Receive Date: 20110928
  Receipt Date: 20110927
  Transmission Date: 20111222
  Serious: Yes (Death)
  Sender: FDA-Public Use
  Company Number: PHEH2011US04737

PATIENT
  Sex: Female

DRUGS (7)
  1. METOPROLOL TARTRATE [Concomitant]
  2. MICARDIS HCT [Concomitant]
  3. ASPIRIN [Concomitant]
  4. EXELON [Suspect]
     Dosage: 4.6 MG, DAILY
     Route: 062
  5. NEXIUM [Concomitant]
  6. NAMENDA [Concomitant]
  7. SIMVASTATIN [Concomitant]
     Dosage: 40 MG, UNK

REACTIONS (1)
  - OVARIAN CANCER METASTATIC [None]
